FAERS Safety Report 5902362-2 (Version None)
Quarter: 2008Q3

REPORT INFORMATION
  Report Type: 
  Country: None (occurrence: None)
  Receive Date: 20080919
  Receipt Date: 20080708
  Transmission Date: 20090109
  Serious: No
  Sender: FDA-Public Use
  Company Number: US-WYE-H04972408

PATIENT
  Age: 58 Year
  Sex: Female
  Weight: 69.46 kg

DRUGS (2)
  1. PRISTIQ [Suspect]
     Indication: MAJOR DEPRESSION
     Dosage: ACCIDENTALLY TOOK TWO PRISTIQ TABLETS IN ONE DAY, ORAL
     Route: 048
     Dates: start: 20080708, end: 20080708
  2. AMARYL [Concomitant]

REACTIONS (6)
  - ACCIDENTAL OVERDOSE [None]
  - ASTHENIA [None]
  - FEELING ABNORMAL [None]
  - INCORRECT DOSE ADMINISTERED [None]
  - MALAISE [None]
  - PAIN [None]
